FAERS Safety Report 16949088 (Version 2)
Quarter: 2019Q4

REPORT INFORMATION
  Report Type: Report from Study
  Country: GB (occurrence: GB)
  Receive Date: 20191023
  Receipt Date: 20191212
  Transmission Date: 20200122
  Serious: Yes (Other)
  Sender: FDA-Public Use
  Company Number: PHHY2015GB168510

PATIENT
  Age: 31 Year
  Sex: Female

DRUGS (1)
  1. GILENYA [Suspect]
     Active Substance: FINGOLIMOD HYDROCHLORIDE
     Indication: MULTIPLE SCLEROSIS
     Dosage: 0.5 MG, QD
     Route: 048
     Dates: start: 20140724, end: 20141219

REACTIONS (8)
  - Vision blurred [Recovered/Resolved]
  - Tinnitus [Recovered/Resolved]
  - Keratic precipitates [Recovered/Resolved]
  - Iridocyclitis [Recovered/Resolved]
  - White blood cell count increased [Unknown]
  - Uveitis [Unknown]
  - Ear pain [Recovered/Resolved]
  - Bladder dysfunction [Unknown]

NARRATIVE: CASE EVENT DATE: 20151102
